FAERS Safety Report 7661723-4 (Version None)
Quarter: 2011Q3

REPORT INFORMATION
  Report Type: 
  Country: None (occurrence: None)
  Receive Date: 20110805
  Receipt Date: 20101025
  Transmission Date: 20111222
  Serious: No
  Sender: FDA-Public Use
  Company Number: US-ABBOTT-10P-163-0681195-00

PATIENT
  Sex: Female
  Weight: 81.72 kg

DRUGS (9)
  1. VITAMIN TAB [Concomitant]
     Indication: VITAMIN SUPPLEMENTATION
  2. NIASPAN [Suspect]
     Indication: BLOOD TRIGLYCERIDES INCREASED
     Dates: start: 20100801, end: 20101001
  3. LISINOPRIL AND HYDROCHLOROTHIAZIDE [Concomitant]
     Indication: HYPERTENSION
  4. AMLODIPINE [Concomitant]
     Indication: HYPERTENSION
  5. LEVOTHYROXINE SODIUM [Concomitant]
     Indication: HYPOTHYROIDISM
  6. FLUOXETINE [Concomitant]
     Indication: DEPRESSION
  7. FISH OIL [Concomitant]
     Indication: BLOOD TRIGLYCERIDES INCREASED
  8. NIASPAN [Suspect]
     Dates: start: 20101001
  9. NABUMETONE [Concomitant]
     Indication: ARTHRITIS

REACTIONS (5)
  - PRURITUS GENERALISED [None]
  - DRUG INEFFECTIVE [None]
  - SKIN BURNING SENSATION [None]
  - URTICARIA [None]
  - BLOOD PRESSURE INCREASED [None]
